FAERS Safety Report 18479503 (Version 1)
Quarter: 2020Q4

REPORT INFORMATION
  Report Type: Spontaneous
  Country: US (occurrence: US)
  Receive Date: 20201106
  Receipt Date: 20201106
  Transmission Date: 20210114
  Serious: No
  Sender: FDA-Public Use
  Company Number: None

PATIENT
  Age: 59 Year
  Sex: Female

DRUGS (13)
  1. PROCHLORPER [Concomitant]
  2. PROMETHAZINE [Concomitant]
     Active Substance: PROMETHAZINE HYDROCHLORIDE
  3. LETROZOLE. [Concomitant]
     Active Substance: LETROZOLE
  4. FUROSEMIDE. [Concomitant]
     Active Substance: FUROSEMIDE
  5. PROGESTERONE. [Concomitant]
     Active Substance: PROGESTERONE
  6. KISQALI [Suspect]
     Active Substance: RIBOCICLIB
     Indication: BREAST CANCER FEMALE
     Dosage: ?          OTHER FREQUENCY:QD 1-21 ;?
     Route: 048
     Dates: start: 20201011
  7. DIAZEPAM. [Concomitant]
     Active Substance: DIAZEPAM
  8. GRANISETRON [Concomitant]
     Active Substance: GRANISETRON
  9. LOSARTAN POT [Concomitant]
     Active Substance: LOSARTAN POTASSIUM
  10. PRAVASTATIN. [Concomitant]
     Active Substance: PRAVASTATIN
  11. AMLODIPINE [Concomitant]
     Active Substance: AMLODIPINE BESYLATE
  12. CEFPODOXIME [Concomitant]
     Active Substance: CEFPODOXIME
  13. ESTRADIOL. [Concomitant]
     Active Substance: ESTRADIOL

REACTIONS (3)
  - Nausea [None]
  - Alopecia [None]
  - Fatigue [None]

NARRATIVE: CASE EVENT DATE: 20200917
